FAERS Safety Report 12549486 (Version 1)
Quarter: 2016Q3

REPORT INFORMATION
  Report Type: Spontaneous
  Country: US (occurrence: US)
  Receive Date: 20160712
  Receipt Date: 20160712
  Transmission Date: 20161109
  Serious: Yes (Other)
  Sender: FDA-Public Use
  Company Number: US-BAYER-2016-131321

PATIENT
  Age: 61 Year
  Sex: Male

DRUGS (3)
  1. ACETYLSALICYLIC ACID({=100 MG) [Suspect]
     Active Substance: ASPIRIN
     Indication: MITRAL VALVE REPLACEMENT
  2. PLAVIX [Interacting]
     Active Substance: CLOPIDOGREL BISULFATE
     Indication: MITRAL VALVE REPLACEMENT
  3. COUMADIN [Interacting]
     Active Substance: WARFARIN SODIUM
     Indication: MITRAL VALVE REPLACEMENT

REACTIONS (4)
  - Aneurysm [None]
  - Labelled drug-drug interaction medication error [None]
  - Haemoptysis [Recovered/Resolved]
  - Drug administration error [None]
